FAERS Safety Report 9496977 (Version 1)
Quarter: 2013Q3

REPORT INFORMATION
  Report Type: Spontaneous
  Country: US (occurrence: None)
  Receive Date: 20130903
  Receipt Date: 20130903
  Transmission Date: 20140515
  Serious: Yes (Life-Threatening, Hospitalization)
  Sender: FDA-Public Use
  Company Number: None

PATIENT
  Age: 55 Year
  Sex: Male
  Weight: 95.26 kg

DRUGS (2)
  1. ELAVIL [Suspect]
     Indication: ANXIETY
     Dosage: 2 AT BEDTIME TAKEN BY MOUTH
     Route: 048
  2. ELAVIL [Suspect]
     Indication: SLEEP DISORDER
     Dosage: 2 AT BEDTIME TAKEN BY MOUTH
     Route: 048

REACTIONS (2)
  - Intentional self-injury [None]
  - Suicidal ideation [None]
